FAERS Safety Report 23145566 (Version 11)
Quarter: 2024Q1

REPORT INFORMATION
  Report Type: Spontaneous
  Country: ES (occurrence: ES)
  Receive Date: 20231103
  Receipt Date: 20240228
  Transmission Date: 20240410
  Serious: Yes (Hospitalization, Other)
  Sender: FDA-Public Use
  Company Number: ES-BIOVITRUM-2023-ES-017128

PATIENT

DRUGS (2)
  1. PEGCETACOPLAN [Suspect]
     Active Substance: PEGCETACOPLAN
     Indication: Paroxysmal nocturnal haemoglobinuria
     Dosage: 24-OCT-2023: THE HEMATOLOGIST DECIDED TO ADMINISTER PEGCETACOPLAN FOR 3 CONSECUTIVE DAYS
     Dates: start: 20230111
  2. PEGCETACOPLAN [Suspect]
     Active Substance: PEGCETACOPLAN
     Dosage: AS THE PATIENT WAS ALREADY RECEIVING PEGCETACOPLAN EVERY 3 DAYS, AFTER RECEIVING THE 3 CONSECUTIVE D
     Dates: start: 2024

REACTIONS (11)
  - Haemolysis [Recovered/Resolved]
  - COVID-19 [Unknown]
  - Off label use [Unknown]
  - Chest pain [Unknown]
  - Influenza [Unknown]
  - Leukocyturia [Unknown]
  - Vomiting [Unknown]
  - Oesophageal spasm [Unknown]
  - Abdominal pain [Unknown]
  - Pyrexia [Unknown]
  - Ear pain [Unknown]

NARRATIVE: CASE EVENT DATE: 20231001
